FAERS Safety Report 8687588 (Version 4)
Quarter: 2013Q3

REPORT INFORMATION
  Report Type: Spontaneous
  Country: JP (occurrence: None)
  Receive Date: 20120712
  Receipt Date: 20130715
  Transmission Date: 20140515
  Serious: Yes (Other)
  Sender: FDA-Public Use
  Company Number: AXC-2012-000288

PATIENT
  Age: 85 Year
  Sex: Male

DRUGS (1)
  1. URSODEOXYCHOLIC ACID [Suspect]
     Indication: HEPATIC FUNCTION ABNORMAL
     Dosage: UNK, ORAL
     Route: 048
     Dates: start: 2012, end: 20120616

REACTIONS (3)
  - Dermatitis exfoliative [None]
  - Rash [None]
  - Generalised erythema [None]
